FAERS Safety Report 6007625-0 (Version None)
Quarter: 2008Q4

REPORT INFORMATION
  Report Type: 
  Country: None (occurrence: None)
  Receive Date: 20081217
  Receipt Date: 20080325
  Transmission Date: 20090506
  Serious: No
  Sender: FDA-Public Use
  Company Number: US-ASTRAZENECA-2008UW05937

PATIENT
  Age: 60 Year
  Sex: Male
  Weight: 86.2 kg

DRUGS (5)
  1. CRESTOR [Suspect]
     Indication: HYPERCHOLESTEROLAEMIA
     Route: 048
     Dates: start: 20080201
  2. BENICAR [Concomitant]
  3. NEXIUM [Concomitant]
     Route: 048
  4. VITAMINS [Concomitant]
  5. ASPIRIN [Concomitant]

REACTIONS (1)
  - MUSCULOSKELETAL STIFFNESS [None]
